FAERS Safety Report 5858979-7 (Version None)
Quarter: 2008Q3

REPORT INFORMATION
  Report Type: 
  Country: None (occurrence: None)
  Receive Date: 20080825
  Receipt Date: 20080811
  Transmission Date: 20090109
  Serious: Yes (Life-Threatening, Hospitalization, Other)
  Sender: FDA-Public Use
  Company Number: 237541J08USA

PATIENT
  Age: 58 Year
  Sex: Male
  Weight: 74.8435 kg

DRUGS (12)
  1. REBIF [Suspect]
     Indication: MULTIPLE SCLEROSIS
     Dosage: 44 MCG, 3 IN 1 WEEKS, SUBCUTANEOUS
     Route: 058
     Dates: start: 20060504, end: 20080425
  2. REBIF [Suspect]
     Indication: MULTIPLE SCLEROSIS
     Dosage: 44 MCG, 3 IN 1 WEEKS, SUBCUTANEOUS
     Route: 058
     Dates: start: 20080501
  3. BACLOFEN [Concomitant]
  4. LEXAPRO [Concomitant]
  5. COREG [Concomitant]
  6. TIZANADINE (TIZANIDINE) [Concomitant]
  7. DIAZEPAM [Concomitant]
  8. PROVIGIL [Concomitant]
  9. HYDROCODONE (HYDROCODONE) [Concomitant]
  10. AMBIEN [Concomitant]
  11. PRILOSEC [Concomitant]
  12. MULTI-VITAMINS [Concomitant]

REACTIONS (7)
  - CARDIAC DISORDER [None]
  - FISTULA DISCHARGE [None]
  - HYPOTENSION [None]
  - LARGE INTESTINE PERFORATION [None]
  - LUNG DISORDER [None]
  - RENAL DISORDER [None]
  - SEPSIS [None]
